FAERS Safety Report 12324805 (Version 5)
Quarter: 2016Q2

REPORT INFORMATION
  Report Type: Report from Study
  Country: CO (occurrence: CO)
  Receive Date: 20160502
  Receipt Date: 20160607
  Transmission Date: 20160815
  Serious: Yes (Death, Hospitalization, Other)
  Sender: FDA-Public Use
  Company Number: PHHY2015CO152984

PATIENT
  Sex: Male
  Weight: 52 kg

DRUGS (5)
  1. VOTRIENT [Suspect]
     Active Substance: PAZOPANIB HYDROCHLORIDE
     Indication: RHABDOMYOSARCOMA
  2. ACETAMINOPHEN. [Concomitant]
     Active Substance: ACETAMINOPHEN
     Indication: PRODUCT USED FOR UNKNOWN INDICATION
     Route: 065
  3. MORPHINE [Concomitant]
     Active Substance: MORPHINE
     Indication: PRODUCT USED FOR UNKNOWN INDICATION
     Route: 065
  4. VOTRIENT [Suspect]
     Active Substance: PAZOPANIB HYDROCHLORIDE
     Indication: SOFT TISSUE SARCOMA
  5. VOTRIENT [Suspect]
     Active Substance: PAZOPANIB HYDROCHLORIDE
     Indication: RENAL CANCER METASTATIC
     Dosage: 400 MG, BID
     Route: 048
     Dates: start: 20151010, end: 20160429

REACTIONS (13)
  - Oncologic complication [Fatal]
  - Drug ineffective [Unknown]
  - Brain neoplasm [Unknown]
  - Drug resistance [Unknown]
  - Diarrhoea [Unknown]
  - Inflammation [Unknown]
  - Eye pain [Unknown]
  - Malignant neoplasm of thorax [Unknown]
  - Fatigue [Unknown]
  - Nausea [Unknown]
  - Recurrent cancer [Fatal]
  - Headache [Unknown]
  - Second primary malignancy [Unknown]
